FAERS Safety Report 6964132-6 (Version None)
Quarter: 2010Q3

REPORT INFORMATION
  Report Type: 
  Country: None (occurrence: None)
  Receive Date: 20100903
  Receipt Date: 20100826
  Transmission Date: 20110219
  Serious: Yes (Other)
  Sender: FDA-Public Use
  Company Number: US-ASTRAZENECA-2007UW10773

PATIENT
  Age: 27 Year
  Sex: Female
  Weight: 104.3 kg

DRUGS (16)
  1. SEROQUEL [Suspect]
     Indication: SCHIZOAFFECTIVE DISORDER
     Route: 048
     Dates: start: 19980101, end: 20100101
  2. SEROQUEL [Suspect]
     Indication: BIPOLAR DISORDER
     Route: 048
     Dates: start: 19980101, end: 20100101
  3. SEROQUEL [Suspect]
     Indication: DEPRESSION
     Route: 048
     Dates: start: 19980101, end: 20100101
  4. SEROQUEL [Suspect]
     Indication: SCHIZOPHRENIA
     Route: 048
     Dates: start: 19980101, end: 20100101
  5. SEROQUEL [Suspect]
     Route: 048
     Dates: start: 20040101
  6. SEROQUEL [Suspect]
     Route: 048
     Dates: start: 20040101
  7. SEROQUEL [Suspect]
     Route: 048
     Dates: start: 20040101
  8. SEROQUEL [Suspect]
     Route: 048
     Dates: start: 20040101
  9. RISPERDAL [Concomitant]
     Indication: SCHIZOAFFECTIVE DISORDER
     Dates: start: 19970101, end: 19980101
  10. RISPERDAL [Concomitant]
     Indication: BIPOLAR DISORDER
     Dates: start: 19970101, end: 19980101
  11. RISPERDAL [Concomitant]
     Indication: DEPRESSION
     Dates: start: 19970101, end: 19980101
  12. ZYPREXA [Concomitant]
     Indication: SCHIZOAFFECTIVE DISORDER
     Dates: start: 19970101, end: 20000101
  13. ZYPREXA [Concomitant]
     Indication: BIPOLAR DISORDER
     Dates: start: 19970101, end: 20000101
  14. ZYPREXA [Concomitant]
     Indication: DEPRESSION
     Dates: start: 19970101, end: 20000101
  15. GEODON [Concomitant]
     Dates: start: 19950101
  16. HALDOL [Concomitant]
     Dates: start: 19950101

REACTIONS (7)
  - BLOOD CHOLESTEROL INCREASED [None]
  - DIABETIC COMPLICATION [None]
  - GALLBLADDER DISORDER [None]
  - HYPERGLYCAEMIA [None]
  - HYPERLIPIDAEMIA [None]
  - OBESITY [None]
  - TYPE 2 DIABETES MELLITUS [None]
